FAERS Safety Report 7344516-7 (Version None)
Quarter: 2011Q1

REPORT INFORMATION
  Report Type: 
  Country: None (occurrence: None)
  Receive Date: 20110308
  Receipt Date: 20110308
  Transmission Date: 20110831
  Serious: Yes (Other)
  Sender: FDA-Public Use
  Company Number: None

PATIENT
  Age: 55 Year
  Sex: Female
  Weight: 54.4316 kg

DRUGS (1)
  1. VIVELLE-DOT [Suspect]
     Dosage: 1 PATCH 2X WEEK TRANSDERMAL
     Route: 062
     Dates: start: 20050101

REACTIONS (2)
  - APPLICATION SITE ERYTHEMA [None]
  - SKIN DISCOLOURATION [None]
